FAERS Safety Report 13176264 (Version 1)
Quarter: 2017Q1

REPORT INFORMATION
  Report Type: Spontaneous
  Country: US (occurrence: US)
  Receive Date: 20170201
  Receipt Date: 20170201
  Transmission Date: 20170428
  Serious: No
  Sender: FDA-Public Use
  Company Number: US-ASTRAZENECA-2017SE09335

PATIENT
  Sex: Female

DRUGS (1)
  1. FASLODEX [Suspect]
     Active Substance: FULVESTRANT
     Dosage: 500
     Route: 030

REACTIONS (7)
  - Adverse event [Unknown]
  - Injection site reaction [Unknown]
  - Injection site mass [Unknown]
  - Injection site erythema [Unknown]
  - Migration of implanted drug [Unknown]
  - Product use issue [Unknown]
  - Injection site pruritus [Unknown]
